FAERS Safety Report 19390022 (Version 2)
Quarter: 2021Q3

REPORT INFORMATION
  Report Type: Spontaneous
  Country: US (occurrence: US)
  Receive Date: 20210608
  Receipt Date: 20210702
  Transmission Date: 20211014
  Serious: No
  Sender: FDA-Public Use
  Company Number: US-KYOWAKIRIN-2021BKK008821

PATIENT

DRUGS (2)
  1. CHOLECALCIFEROL [Suspect]
     Active Substance: CHOLECALCIFEROL
     Indication: PRODUCT USED FOR UNKNOWN INDICATION
     Dosage: 10 MCG (400 UNITS) DAILY
     Route: 065
     Dates: start: 20191210, end: 20200602
  2. CRYSVITA [Suspect]
     Active Substance: BUROSUMAB-TWZA
     Indication: HEREDITARY HYPOPHOSPHATAEMIC RICKETS
     Dosage: 30 MG, ONCE EVERY 14 DAYS
     Route: 058
     Dates: start: 20190107

REACTIONS (1)
  - Vitamin D increased [Unknown]
